FAERS Safety Report 18876472 (Version 2)
Quarter: 2021Q1

REPORT INFORMATION
  Report Type: Spontaneous
  Country: JP (occurrence: JP)
  Receive Date: 20210211
  Receipt Date: 20210225
  Transmission Date: 20210420
  Serious: Yes (Life-Threatening, Hospitalization)
  Sender: FDA-Public Use
  Company Number: JP-TEVA-2021-JP-1877074

PATIENT
  Age: 73 Year
  Sex: Male
  Weight: 71 kg

DRUGS (11)
  1. MINOCYCLINE [Suspect]
     Active Substance: MINOCYCLINE HYDROCHLORIDE
     Indication: COVID-19
     Route: 065
     Dates: start: 2020, end: 2020
  2. FAVIPIRAVIR [Suspect]
     Active Substance: FAVIPIRAVIR
     Dosage: 2400 MILLIGRAM DAILY; FROM DAY 2 FOR TOTAL 14 DAYS
     Route: 065
     Dates: start: 2020, end: 2020
  3. TRIMETHOPRIM?SULFAMETHOXAZOLE [Suspect]
     Active Substance: SULFAMETHOXAZOLE\TRIMETHOPRIM
     Indication: COVID-19
     Route: 065
     Dates: start: 2020, end: 2020
  4. VANCOMYCIN [Suspect]
     Active Substance: VANCOMYCIN
     Indication: COVID-19
     Route: 065
     Dates: start: 2020, end: 2020
  5. LOPINAVIR/RITONAVIR [Suspect]
     Active Substance: LOPINAVIR\RITONAVIR
     Indication: COVID-19
     Route: 065
     Dates: start: 2020, end: 2020
  6. INTERFERON BETA?1B [Suspect]
     Active Substance: INTERFERON BETA-1B
     Indication: COVID-19
     Route: 065
     Dates: start: 2020, end: 2020
  7. MICAFUNGIN. [Concomitant]
     Active Substance: MICAFUNGIN SODIUM
     Indication: BLOOD BETA-D-GLUCAN INCREASED
     Route: 065
     Dates: start: 2020, end: 2020
  8. CEFEPIME [Suspect]
     Active Substance: CEFEPIME HYDROCHLORIDE
     Indication: COVID-19
     Route: 065
     Dates: start: 2020, end: 2020
  9. FAVIPIRAVIR [Suspect]
     Active Substance: FAVIPIRAVIR
     Indication: COVID-19
     Dosage: 6000 MILLIGRAM DAILY; ON DAY 1
     Route: 065
     Dates: start: 2020, end: 2020
  10. MEROPENEM. [Suspect]
     Active Substance: MEROPENEM
     Indication: COVID-19
     Route: 065
     Dates: start: 2020, end: 2020
  11. LEVOFLOXACIN. [Suspect]
     Active Substance: LEVOFLOXACIN
     Indication: COVID-19
     Route: 065
     Dates: start: 2020, end: 2020

REACTIONS (4)
  - Blood pressure decreased [Unknown]
  - Off label use [Unknown]
  - Cholestatic liver injury [Not Recovered/Not Resolved]
  - Haematochezia [Unknown]

NARRATIVE: CASE EVENT DATE: 2020
